FAERS Safety Report 21487281 (Version 1)
Quarter: 2022Q4

REPORT INFORMATION
  Report Type: Spontaneous
  Country: ES (occurrence: ES)
  Receive Date: 20221020
  Receipt Date: 20221020
  Transmission Date: 20230112
  Serious: Yes (Hospitalization, Other)
  Sender: FDA-Public Use
  Company Number: None

PATIENT
  Age: 86 Year
  Sex: Female

DRUGS (12)
  1. ELIQUIS [Suspect]
     Active Substance: APIXABAN
     Indication: Atrial fibrillation
     Route: 048
     Dates: start: 20221006
  2. FUROSEMIDE [Suspect]
     Active Substance: FUROSEMIDE
     Indication: Hypertension
     Dosage: 40.0 MG A-DE
     Route: 048
     Dates: start: 20221006
  3. HYDROCHLOROTHIAZIDE\OLMESARTAN MEDOXOMIL [Suspect]
     Active Substance: HYDROCHLOROTHIAZIDE\OLMESARTAN MEDOXOMIL
     Indication: Essential hypertension
     Dosage: 40.0 MG A-DE
     Route: 048
     Dates: start: 20220826
  4. EFFERALGAN [Concomitant]
     Active Substance: ACETAMINOPHEN
     Indication: Product used for unknown indication
     Dosage: 1.0 G DECOCE
     Route: 048
     Dates: start: 20220825
  5. FLUVASTATINA TEVA [Concomitant]
     Indication: Hyperlipidaemia
     Dosage: 20.0 MG CE
     Route: 048
     Dates: start: 20220718
  6. PAROXETINE HYDROCHLORIDE [Concomitant]
     Active Substance: PAROXETINE HYDROCHLORIDE
     Indication: Depression
     Dosage: 20.0 MG DE
     Route: 048
     Dates: start: 20140515
  7. ACETAMINOPHEN [Concomitant]
     Active Substance: ACETAMINOPHEN
     Indication: Abdominal pain
     Dosage: 1.0 G DECOCE
     Route: 048
     Dates: start: 20221005, end: 20221009
  8. FERROUS SULFATE [Concomitant]
     Active Substance: FERROUS SULFATE
     Indication: Blood iron abnormal
     Dosage: 105.0 MG C/24 H AM
     Route: 048
     Dates: start: 20220719
  9. DISBRON [Concomitant]
     Indication: Vitamin D decreased
     Dosage: 25000.0 UI C/15 DIAS
     Route: 048
     Dates: start: 20220719
  10. OMEPRAZOL TEVA-RIMAFAR [Concomitant]
     Indication: Abdominal pain
     Dosage: 20.0 MG A-DE
     Route: 048
     Dates: start: 20221006
  11. RABEPRAZOLE SODIUM [Concomitant]
     Active Substance: RABEPRAZOLE SODIUM
     Indication: Dyspepsia
     Dosage: 20.0 MG DECE
     Route: 048
     Dates: start: 20110315
  12. ACETAMINOPHEN\ASCORBIC ACID\CODEINE [Concomitant]
     Active Substance: ACETAMINOPHEN\ASCORBIC ACID\CODEINE
     Indication: Cardiac disorder
     Dosage: 1.0 SOBRE DECOCE ( 650 MG/ 10 MG/ 500 MG)
     Route: 048
     Dates: start: 20221006, end: 20221010

REACTIONS (1)
  - Hypokalaemia [Recovering/Resolving]

NARRATIVE: CASE EVENT DATE: 20221011
